FAERS Safety Report 18865654 (Version 2)
Quarter: 2021Q1

REPORT INFORMATION
  Report Type: Spontaneous
  Country: CA (occurrence: CA)
  Receive Date: 20210208
  Receipt Date: 20210226
  Transmission Date: 20210420
  Serious: Yes (Other)
  Sender: FDA-Public Use
  Company Number: CA-BAUSCH-BL-2021-003575

PATIENT
  Age: 26 Year
  Sex: Male

DRUGS (4)
  1. CESAMET [Suspect]
     Active Substance: NABILONE
     Indication: PRODUCT USE IN UNAPPROVED INDICATION
  2. NABILONE [Suspect]
     Active Substance: NABILONE
     Indication: TOURETTE^S DISORDER
     Route: 048
  3. CESAMET [Suspect]
     Active Substance: NABILONE
     Indication: TOURETTE^S DISORDER
     Dosage: FOR YEARS
     Route: 048
  4. NABILONE [Suspect]
     Active Substance: NABILONE
     Indication: PRODUCT USE IN UNAPPROVED INDICATION

REACTIONS (6)
  - Tourette^s disorder [Not Recovered/Not Resolved]
  - Product use in unapproved indication [Unknown]
  - Product substitution issue [Unknown]
  - Condition aggravated [Not Recovered/Not Resolved]
  - Neck pain [Not Recovered/Not Resolved]
  - Back pain [Not Recovered/Not Resolved]
